FAERS Safety Report 8212680-3 (Version None)
Quarter: 2012Q1

REPORT INFORMATION
  Report Type: 
  Country: None (occurrence: None)
  Receive Date: 20120315
  Receipt Date: 20120307
  Transmission Date: 20120608
  Serious: Yes (Hospitalization, Disabling)
  Sender: FDA-Public Use
  Company Number: US-JNJFOC-20100701698

PATIENT
  Age: 55 Year
  Sex: Female
  Weight: 89 kg

DRUGS (7)
  1. NUCYNTA [Suspect]
     Indication: PAIN
     Dosage: EVERY 4-6 HOURS
     Route: 048
  2. TOBRADEX [Concomitant]
     Route: 065
  3. FLUTICASONE [Concomitant]
     Route: 065
  4. CLONIDINE [Concomitant]
     Route: 065
  5. PAROXETINE HCL [Interacting]
     Indication: MOOD SWINGS
     Dosage: ONCE DAILY
     Route: 048
  6. RANITIDINE [Concomitant]
     Route: 065
  7. CYTOMEL [Concomitant]
     Route: 065

REACTIONS (5)
  - DRUG INTERACTION [None]
  - PARAESTHESIA [None]
  - BLOOD PRESSURE INCREASED [None]
  - TOXICITY TO VARIOUS AGENTS [None]
  - SEROTONIN SYNDROME [None]
